FAERS Safety Report 13499025 (Version 8)
Quarter: 2018Q2

REPORT INFORMATION
  Report Type: Spontaneous
  Country: JP (occurrence: JP)
  Receive Date: 20170501
  Receipt Date: 20180613
  Transmission Date: 20180711
  Serious: Yes (Death, Disabling, Other)
  Sender: FDA-Public Use
  Company Number: JP-009507513-1704JPN002299J

PATIENT
  Age: 71 Year
  Sex: Male
  Weight: 65 kg

DRUGS (13)
  1. EPERISONE HYDROCHLORIDE [Concomitant]
     Active Substance: EPERISONE HYDROCHLORIDE
     Indication: PAIN
     Dosage: 3 DF, TID
     Route: 048
     Dates: start: 20170324, end: 20170421
  2. METOCLOPRAMIDE. [Concomitant]
     Active Substance: METOCLOPRAMIDE
     Indication: NAUSEA
     Dosage: 2 DF, BID
     Route: 048
     Dates: start: 20170324, end: 20170421
  3. NEXIUM [Concomitant]
     Active Substance: ESOMEPRAZOLE MAGNESIUM
     Indication: LUNG ADENOCARCINOMA STAGE IV
     Dosage: 20 MG, QD
     Route: 048
     Dates: start: 20170324, end: 20170421
  4. SODIUM PICOSULFATE HYDRATE [Concomitant]
     Active Substance: SODIUM PICOSULFATE
     Indication: CONSTIPATION
     Dosage: UNK UNK, PRN
     Route: 048
     Dates: start: 20170324, end: 20170424
  5. MAGNESIUM OXIDE. [Concomitant]
     Active Substance: MAGNESIUM OXIDE
     Indication: CONSTIPATION
     Dosage: 3 DF, TID
     Route: 048
     Dates: start: 20170324, end: 20170421
  6. LECICARBON [Concomitant]
     Active Substance: SODIUM BICARBONATE\SODIUM PHOSPHATE, MONOBASIC
     Indication: CONSTIPATION
     Dosage: UNK, PRN
     Route: 067
     Dates: start: 20170324, end: 20170424
  7. LOXOPROFEN [Concomitant]
     Active Substance: LOXOPROFEN
     Indication: LUNG ADENOCARCINOMA STAGE IV
     Dosage: 60 MG, QD
     Route: 048
     Dates: start: 20170324, end: 20170421
  8. KEYTRUDA [Suspect]
     Active Substance: PEMBROLIZUMAB
     Indication: LUNG ADENOCARCINOMA STAGE IV
     Dosage: 200 MG, Q3W
     Route: 041
     Dates: start: 20170414, end: 20170414
  9. OXYCONTIN [Concomitant]
     Active Substance: OXYCODONE HYDROCHLORIDE
     Indication: LUNG ADENOCARCINOMA STAGE IV
     Dosage: 5.0 MG, BID
     Route: 048
     Dates: start: 20170324, end: 20170421
  10. LYRICA [Concomitant]
     Active Substance: PREGABALIN
     Indication: PAIN
     Dosage: 75 MG, QD
     Route: 048
     Dates: start: 20170324, end: 20170421
  11. OXINORM [Concomitant]
     Indication: LUNG ADENOCARCINOMA STAGE IV
     Dosage: 2.5 MG, QD
     Route: 048
  12. AMITIZA [Concomitant]
     Active Substance: LUBIPROSTONE
     Indication: CONSTIPATION
     Dosage: 2 DF, BID
     Route: 048
     Dates: start: 20170405, end: 20170421
  13. DECADRON [Concomitant]
     Active Substance: DEXAMETHASONE
     Indication: LUNG ADENOCARCINOMA STAGE IV
     Dosage: 4.0 MG, QD
     Route: 048
     Dates: start: 20170407, end: 20170421

REACTIONS (5)
  - Malignant neoplasm progression [Fatal]
  - Large intestine perforation [Fatal]
  - Retroperitoneal haematoma [Not Recovered/Not Resolved]
  - Abdominal abscess [Fatal]
  - Pleural effusion [Not Recovered/Not Resolved]

NARRATIVE: CASE EVENT DATE: 201704
